FAERS Safety Report 11250621 (Version 1)
Quarter: 2015Q3

REPORT INFORMATION
  Report Type: Spontaneous
  Country: US (occurrence: US)
  Receive Date: 20150708
  Receipt Date: 20150708
  Transmission Date: 20151125
  Serious: No
  Sender: FDA-Public Use
  Company Number: US-ELI_LILLY_AND_COMPANY-US201102003405

PATIENT
  Age: 27 Year
  Sex: Female

DRUGS (1)
  1. SYMBYAX [Suspect]
     Active Substance: FLUOXETINE HYDROCHLORIDE\OLANZAPINE
     Indication: EATING DISORDER
     Dosage: 6/25 MG, UNKNOWN

REACTIONS (2)
  - Weight increased [Unknown]
  - Product use issue [Recovered/Resolved]
